FAERS Safety Report 14113492 (Version 1)
Quarter: 2017Q4

REPORT INFORMATION
  Report Type: Spontaneous
  Country: US (occurrence: US)
  Receive Date: 20171022
  Receipt Date: 20171022
  Transmission Date: 20180321
  Serious: No
  Sender: FDA-Public Use
  Company Number: None

PATIENT
  Age: 36 Year
  Sex: Female
  Weight: 90 kg

DRUGS (1)
  1. OSELTAMIVIR PHOSPHATE CAPSULES USP, 75MG [Suspect]
     Active Substance: OSELTAMIVIR PHOSPHATE
     Indication: INFLUENZA
     Dosage: ?          QUANTITY:10 CAPSULE(S);?
     Route: 048

REACTIONS (7)
  - Amnesia [None]
  - Cold sweat [None]
  - Nausea [None]
  - Fall [None]
  - Skin abrasion [None]
  - Head injury [None]
  - Syncope [None]

NARRATIVE: CASE EVENT DATE: 20171021
